FAERS Safety Report 14505562 (Version 12)
Quarter: 2024Q1

REPORT INFORMATION
  Report Type: Spontaneous
  Country: PT (occurrence: PT)
  Receive Date: 20180208
  Receipt Date: 20240313
  Transmission Date: 20240410
  Serious: Yes (Life-Threatening, Hospitalization, Other)
  Sender: FDA-Public Use
  Company Number: PT-PFIZER INC-2018033600

PATIENT
  Age: 61 Year
  Sex: Female

DRUGS (4)
  1. VENLAFAXINE [Suspect]
     Active Substance: VENLAFAXINE HYDROCHLORIDE
     Indication: Depression
     Dosage: 75 MILLIGRAM, QD
     Route: 048
  2. VENLAFAXINE [Suspect]
     Active Substance: VENLAFAXINE HYDROCHLORIDE
     Indication: Psychotic disorder
     Dosage: 150 MILLIGRAM, QD
     Route: 048
  3. CITALOPRAM [Suspect]
     Active Substance: CITALOPRAM HYDROBROMIDE
     Indication: Product used for unknown indication
     Dosage: UNK
     Route: 065
  4. DIAZEPAM [Concomitant]
     Active Substance: DIAZEPAM
     Indication: Product used for unknown indication
     Dosage: QD
     Route: 065

REACTIONS (11)
  - Musculoskeletal stiffness [Recovered/Resolved]
  - Serotonin syndrome [Recovered/Resolved]
  - Depressed mood [Unknown]
  - Insomnia [Unknown]
  - Drug ineffective [Unknown]
  - Disorientation [Recovered/Resolved]
  - Tremor [Recovered/Resolved]
  - Psychomotor hyperactivity [Recovered/Resolved]
  - Pyrexia [Recovered/Resolved]
  - Muscle rigidity [Recovered/Resolved]
  - Tachycardia [Recovered/Resolved]
